FAERS Safety Report 23410859 (Version 7)
Quarter: 2024Q3

REPORT INFORMATION
  Report Type: Spontaneous
  Country: US (occurrence: US)
  Receive Date: 20240117
  Receipt Date: 20240808
  Transmission Date: 20241016
  Serious: Yes (Other)
  Sender: BRISTOL MYERS SQUIBB
  Company Number: US-BRISTOL-MYERS SQUIBB COMPANY-2024-008685

PATIENT
  Age: 85 Year
  Sex: Male

DRUGS (3)
  1. LENALIDOMIDE [Suspect]
     Active Substance: LENALIDOMIDE
     Indication: Myelodysplastic syndrome
     Route: 048
     Dates: start: 20231221
  2. LENALIDOMIDE [Suspect]
     Active Substance: LENALIDOMIDE
     Route: 048
  3. LENALIDOMIDE [Suspect]
     Active Substance: LENALIDOMIDE
     Dosage: TAKE 1 CAPSULE BY MOUTH DAILY FOR 15 DAYS AND 13 DAYS OFF
     Route: 048

REACTIONS (8)
  - Fatigue [Not Recovered/Not Resolved]
  - Rash [Unknown]
  - Dyspnoea [Unknown]
  - Drug ineffective [Recovering/Resolving]
  - Off label use [Unknown]
  - Oedema peripheral [Not Recovered/Not Resolved]
  - Rash pruritic [Recovered/Resolved]
  - Rash [Recovered/Resolved]

NARRATIVE: CASE EVENT DATE: 20240504
